FAERS Safety Report 20045209 (Version 1)
Quarter: 2021Q4

REPORT INFORMATION
  Report Type: Report from Study
  Country: IT (occurrence: IT)
  Receive Date: 20211108
  Receipt Date: 20211108
  Transmission Date: 20220303
  Serious: Yes (Hospitalization)
  Sender: FDA-Public Use
  Company Number: None

PATIENT
  Age: 17 Year
  Sex: Female

DRUGS (4)
  1. OLANZAPINE [Suspect]
     Active Substance: OLANZAPINE
     Indication: Conversion disorder
     Dosage: 5 DOSAGE FORM, TOTAL
     Route: 048
     Dates: start: 20210704, end: 20210704
  2. CHLORPROMAZINE HYDROCHLORIDE [Suspect]
     Active Substance: CHLORPROMAZINE HYDROCHLORIDE
     Indication: Conversion disorder
     Dosage: 100 MILLIGRAM, TOTAL
     Route: 048
     Dates: start: 20210704, end: 20210704
  3. LITHIUM CARBONATE [Suspect]
     Active Substance: LITHIUM CARBONATE
     Indication: Conversion disorder
     Dosage: 9 DOSAGE FORM, TOTAL
     Route: 048
     Dates: start: 20210704, end: 20210704
  4. LITHIUM CARBONATE [Suspect]
     Active Substance: LITHIUM CARBONATE
     Indication: Conversion disorder
     Dosage: 8 DOSAGE FORM, TOTAL
     Route: 048
     Dates: start: 20210704, end: 20210704

REACTIONS (4)
  - Bradyphrenia [Recovering/Resolving]
  - Drug abuse [Recovering/Resolving]
  - Mutism [Recovering/Resolving]
  - Hypokinesia [Recovering/Resolving]

NARRATIVE: CASE EVENT DATE: 20210704
